FAERS Safety Report 7458337-8 (Version None)
Quarter: 2011Q2

REPORT INFORMATION
  Report Type: 
  Country: None (occurrence: None)
  Receive Date: 20110503
  Receipt Date: 20110503
  Transmission Date: 20111010
  Serious: Yes (Hospitalization)
  Sender: FDA-Public Use
  Company Number: None

PATIENT
  Sex: Male
  Weight: 77.1115 kg

DRUGS (2)
  1. CYMBALTA [Suspect]
     Indication: DEPRESSION
     Dosage: 60MG 1QD PO
     Route: 048
     Dates: start: 20110418, end: 20110419
  2. CYMBALTA [Suspect]
     Indication: FIBROMYALGIA
     Dosage: 30MG 1QD PO
     Route: 048
     Dates: start: 20110329, end: 20110418

REACTIONS (6)
  - DRUG INTERACTION [None]
  - BALANCE DISORDER [None]
  - UNEVALUABLE EVENT [None]
  - AMNESIA [None]
  - NERVOUS SYSTEM DISORDER [None]
  - DISTURBANCE IN ATTENTION [None]
